FAERS Safety Report 9404094 (Version 1)
Quarter: 2013Q3

REPORT INFORMATION
  Report Type: Spontaneous
  Country: US (occurrence: None)
  Receive Date: 20130716
  Receipt Date: 20130716
  Transmission Date: 20140515
  Serious: Yes (Other)
  Sender: FDA-Public Use
  Company Number: None

PATIENT
  Age: 72 Year
  Sex: Female
  Weight: 76.2 kg

DRUGS (2)
  1. METHADONE [Suspect]
     Indication: BACK PAIN
     Dosage: 3X DAILY DAILY?SEVERAL YEARS
  2. METHADONE [Suspect]
     Dosage: 3X DAILY DAILY?SEVERAL YEARS

REACTIONS (1)
  - Osteoporosis [None]
